FAERS Safety Report 9132829 (Version 3)
Quarter: 2013Q3

REPORT INFORMATION
  Report Type: Spontaneous
  Country: DK (occurrence: DK)
  Receive Date: 20130301
  Receipt Date: 20130909
  Transmission Date: 20140515
  Serious: Yes (Hospitalization)
  Sender: FDA-Public Use
  Company Number: DK-ABBOTT-13P-044-1055247-00

PATIENT
  Age: 62 Year
  Sex: Male
  Weight: 75 kg

DRUGS (6)
  1. HUMIRA [Suspect]
     Indication: CROHN^S DISEASE
     Dates: start: 20091006
  2. HUMIRA [Suspect]
     Dates: start: 2011, end: 20110502
  3. SALAZOPYRIN [Concomitant]
     Indication: CROHN^S DISEASE
  4. LOSARTAN POTASSIUM [Concomitant]
     Indication: HYPERTENSION
  5. AMLODINPIN ^ACTAVIS^ (AMLODIPINE MISILATE MONOHYDRATE) [Concomitant]
     Indication: HYPERTENSION
  6. METOPROLOL TARTRATE [Concomitant]
     Indication: PRODUCT USED FOR UNKNOWN INDICATION

REACTIONS (6)
  - Gingival bleeding [Recovered/Resolved]
  - Interstitial lung disease [Recovering/Resolving]
  - Tremor [Recovered/Resolved]
  - Productive cough [Not Recovered/Not Resolved]
  - Crohn^s disease [Unknown]
  - General physical health deterioration [Unknown]
